FAERS Safety Report 22383059 (Version 1)
Quarter: 2023Q2

REPORT INFORMATION
  Report Type: Spontaneous
  Country: US (occurrence: US)
  Receive Date: 20230530
  Receipt Date: 20230530
  Transmission Date: 20230722
  Serious: No
  Sender: FDA-Public Use
  Company Number: US-ABBVIE-4772258

PATIENT

DRUGS (2)
  1. SYNTHROID [Suspect]
     Active Substance: LEVOTHYROXINE SODIUM
     Indication: Product used for unknown indication
     Route: 048
  2. ARMOUR THYROID [Suspect]
     Active Substance: THYROID, PORCINE
     Indication: Product used for unknown indication
     Dosage: THYROID POWDER 15 MG TAB (TBD
     Route: 065

REACTIONS (3)
  - Hair disorder [Not Recovered/Not Resolved]
  - Muscle spasms [Unknown]
  - Weight abnormal [Not Recovered/Not Resolved]
